FAERS Safety Report 5584631-1 (Version None)
Quarter: 2008Q1

REPORT INFORMATION
  Report Type: 
  Country: None (occurrence: None)
  Receive Date: 20080108
  Receipt Date: 20071226
  Transmission Date: 20080703
  Serious: Yes (Hospitalization)
  Sender: FDA-Public Use
  Company Number: FR-PFIZER INC-2008000858

PATIENT
  Sex: Male

DRUGS (7)
  1. MIGLITOL TABLET [Suspect]
     Indication: DIABETES MELLITUS
     Route: 048
  2. GLUCOVANCE [Suspect]
     Indication: DIABETES MELLITUS
     Route: 048
  3. TRANDOLAPRIL/VERAPAMIL [Concomitant]
     Route: 048
  4. NEBIVOLOL [Concomitant]
     Route: 048
  5. TRIVASTAL [Concomitant]
     Route: 048
  6. EUPRESSYL [Concomitant]
  7. KARDEGIC [Concomitant]
     Route: 048

REACTIONS (5)
  - CONVULSION [None]
  - DYSARTHRIA [None]
  - FACIAL PALSY [None]
  - HYPOGLYCAEMIA [None]
  - PARESIS [None]
